FAERS Safety Report 5984392-8 (Version None)
Quarter: 2008Q4

REPORT INFORMATION
  Report Type: 
  Country: None (occurrence: None)
  Receive Date: 20081208
  Receipt Date: 20080312
  Transmission Date: 20090506
  Serious: No
  Sender: FDA-Public Use
  Company Number: US-AMGEN-KDL265577

PATIENT
  Sex: Male

DRUGS (1)
  1. ENBREL [Suspect]
     Indication: PSORIATIC ARTHROPATHY
     Route: 058
     Dates: start: 20040901

REACTIONS (5)
  - DRUG EFFECT DECREASED [None]
  - INJECTION SITE IRRITATION [None]
  - INJECTION SITE PAIN [None]
  - JOINT SWELLING [None]
  - PSORIASIS [None]
